FAERS Safety Report 11553554 (Version 1)
Quarter: 2015Q3

REPORT INFORMATION
  Report Type: Spontaneous
  Country: JP (occurrence: JP)
  Receive Date: 20150925
  Receipt Date: 20150925
  Transmission Date: 20151125
  Serious: Yes (Other)
  Sender: FDA-Public Use
  Company Number: JP-PFIZER INC-2015317246

PATIENT
  Sex: Male

DRUGS (3)
  1. ALOGLIPTIN BENZOATE [Concomitant]
     Active Substance: ALOGLIPTIN BENZOATE
     Dosage: UNK
  2. TAKEPRON [Concomitant]
     Active Substance: LANSOPRAZOLE
     Dosage: UNK
  3. SEIBULE [Suspect]
     Active Substance: MIGLITOL
     Indication: DIABETES MELLITUS
     Dosage: UNK
     Route: 048
     Dates: start: 2013, end: 20150914

REACTIONS (1)
  - Blood creatine phosphokinase increased [Unknown]

NARRATIVE: CASE EVENT DATE: 20150912
